FAERS Safety Report 5140182-X (Version None)
Quarter: 2006Q4

REPORT INFORMATION
  Report Type: 
  Country: None (occurrence: None)
  Receive Date: 20061031
  Receipt Date: 20061004
  Transmission Date: 20070319
  Serious: Yes (Death)
  Sender: FDA-Public Use
  Company Number: ES-BRISTOL-MYERS SQUIBB COMPANY-13530639

PATIENT
  Age: 55 Year
  Sex: Female
  Weight: 48 kg

DRUGS (9)
  1. CISPLATIN [Suspect]
     Indication: NON-SMALL CELL LUNG CANCER
     Route: 042
     Dates: start: 20060926, end: 20060926
  2. PF-3512676 [Suspect]
     Indication: NON-SMALL CELL LUNG CANCER
     Route: 058
     Dates: start: 20060919, end: 20060919
  3. GEMCITABINE [Suspect]
     Indication: NON-SMALL CELL LUNG CANCER
     Route: 042
     Dates: start: 20060926, end: 20060926
  4. OMEPRAZOLE [Concomitant]
     Route: 048
     Dates: start: 20060816, end: 20060927
  5. ROMILAR [Concomitant]
     Route: 048
     Dates: start: 20060816, end: 20060927
  6. REXER [Concomitant]
     Route: 048
     Dates: end: 20060926
  7. IBUPROFEN [Concomitant]
     Route: 048
     Dates: start: 20060816, end: 20060927
  8. ZOLPIDEM TARTRATE [Concomitant]
     Route: 048
     Dates: start: 20060816, end: 20060927
  9. TRANKIMAZIN [Concomitant]
     Route: 048
     Dates: start: 20060816, end: 20060927

REACTIONS (1)
  - DEATH [None]
